FAERS Safety Report 12304135 (Version 1)
Quarter: 2016Q2

REPORT INFORMATION
  Report Type: Spontaneous
  Country: US (occurrence: None)
  Receive Date: 20160425
  Receipt Date: 20160425
  Transmission Date: 20160815
  Serious: No
  Sender: FDA-Public Use
  Company Number: None

PATIENT
  Age: 68 Year
  Sex: Female

DRUGS (4)
  1. FLUOXETINE [Concomitant]
     Active Substance: FLUOXETINE HYDROCHLORIDE
  2. HYDROCODONE BITARTRATE AND ACETAMINOPHEN [Concomitant]
     Active Substance: ACETAMINOPHEN\HYDROCODONE BITARTRATE
  3. HYDROMORPHONE [Concomitant]
     Active Substance: HYDROMORPHONE
  4. SUTENT [Suspect]
     Active Substance: SUNITINIB MALATE
     Indication: RETROPERITONEAL CANCER
     Route: 048
     Dates: start: 20160409

REACTIONS (6)
  - Blood pressure increased [None]
  - Cough [None]
  - Myalgia [None]
  - Oropharyngeal pain [None]
  - Fatigue [None]
  - Oral pain [None]

NARRATIVE: CASE EVENT DATE: 20160411
